FAERS Safety Report 11783919 (Version 5)
Quarter: 2016Q1

REPORT INFORMATION
  Report Type: Spontaneous
  Country: GB (occurrence: GB)
  Receive Date: 20151128
  Receipt Date: 20160210
  Transmission Date: 20160525
  Serious: Yes (Other)
  Sender: FDA-Public Use
  Company Number: GB-AMGEN-GBRSP2015125235

PATIENT
  Age: 46 Year
  Sex: Female
  Weight: 75 kg

DRUGS (2)
  1. ENBREL [Suspect]
     Active Substance: ETANERCEPT
     Indication: ANKYLOSING SPONDYLITIS
     Dosage: 25 MG, 2X/WEEK
     Route: 030
     Dates: start: 20151116
  2. ENBREL [Suspect]
     Active Substance: ETANERCEPT
     Indication: RHEUMATOID ARTHRITIS
     Dosage: 2 MG, UNK
     Route: 030

REACTIONS (16)
  - Throat irritation [Unknown]
  - Influenza like illness [Unknown]
  - Malaise [Not Recovered/Not Resolved]
  - Pharyngeal hypoaesthesia [Recovered/Resolved]
  - Pharyngeal oedema [Recovered/Resolved]
  - Nasopharyngitis [Unknown]
  - Nausea [Recovered/Resolved]
  - Dysphonia [Unknown]
  - Abdominal discomfort [Recovered/Resolved]
  - Flushing [Unknown]
  - Feeling hot [Unknown]
  - Headache [Unknown]
  - Defaecation urgency [Unknown]
  - Abdominal pain [Unknown]
  - Rhinorrhoea [Unknown]
  - Wheezing [Recovered/Resolved]

NARRATIVE: CASE EVENT DATE: 201511
